FAERS Safety Report 12974088 (Version 2)
Quarter: 2018Q4

REPORT INFORMATION
  Report Type: Spontaneous
  Country: PL (occurrence: PL)
  Receive Date: 20161124
  Receipt Date: 20181207
  Transmission Date: 20190204
  Serious: Yes (Other)
  Sender: FDA-Public Use
  Company Number: PL-APOTEX-2016AP014960

PATIENT
  Age: 65 Year
  Sex: Male

DRUGS (9)
  1. EVEROLIMUS. [Concomitant]
     Active Substance: EVEROLIMUS
     Dosage: 0.75 MG, TWICE
     Route: 065
  2. MYCOPHENOLATE [Suspect]
     Active Substance: MYCOPHENOLIC ACID
     Indication: IMMUNOSUPPRESSANT DRUG THERAPY
     Dosage: 2 G, QD
     Route: 065
  3. PREDNISOLONE. [Suspect]
     Active Substance: PREDNISOLONE
     Indication: IMMUNOSUPPRESSANT DRUG THERAPY
     Dosage: 5 MG, UNK
     Route: 065
  4. CYCLOSPORINE. [Suspect]
     Active Substance: CYCLOSPORINE
     Indication: IMMUNOSUPPRESSANT DRUG THERAPY
     Dosage: 100 MG, TWICE
     Route: 065
  5. EVEROLIMUS. [Concomitant]
     Active Substance: EVEROLIMUS
     Dosage: 1.25 MG, TWICE
     Route: 065
  6. MYCOPHENOLATE [Suspect]
     Active Substance: MYCOPHENOLIC ACID
     Indication: RENAL TRANSPLANT
     Dosage: UNK
     Route: 065
     Dates: start: 2013, end: 2013
  7. EVEROLIMUS. [Concomitant]
     Active Substance: EVEROLIMUS
     Indication: IMMUNOSUPPRESSANT DRUG THERAPY
     Dosage: 1 MG, TWICE
     Route: 065
  8. CYCLOSPORINE. [Suspect]
     Active Substance: CYCLOSPORINE
     Indication: RENAL TRANSPLANT
  9. PREDNISOLONE. [Suspect]
     Active Substance: PREDNISOLONE
     Indication: RENAL TRANSPLANT

REACTIONS (3)
  - Diarrhoea [Unknown]
  - Drug intolerance [Unknown]
  - Kaposi^s sarcoma [Recovered/Resolved]

NARRATIVE: CASE EVENT DATE: 2013
